FAERS Safety Report 10646908 (Version 7)
Quarter: 2017Q1

REPORT INFORMATION
  Report Type: Spontaneous
  Country: US (occurrence: US)
  Receive Date: 20141211
  Receipt Date: 20170307
  Transmission Date: 20170428
  Serious: Yes (Hospitalization, Disabling, Other)
  Sender: FDA-Public Use
  Company Number: US-009507513-1412USA005046

PATIENT
  Sex: Female
  Weight: 68.27 kg

DRUGS (4)
  1. CHOLECALCIFEROL [Concomitant]
     Active Substance: CHOLECALCIFEROL
     Indication: PRODUCT USED FOR UNKNOWN INDICATION
     Dosage: 700 IU, UNK
     Route: 065
     Dates: start: 2000
  2. ALENDRONATE SODIUM. [Suspect]
     Active Substance: ALENDRONATE SODIUM
     Indication: OSTEOPOROSIS
     Dosage: 70 MG, QW
     Route: 048
     Dates: start: 20080302, end: 20080510
  3. FOSAMAX [Suspect]
     Active Substance: ALENDRONATE SODIUM
     Indication: OSTEOPOROSIS
     Dosage: 70 MG, QW
     Route: 048
     Dates: start: 20040310, end: 200802
  4. CALCIUM (UNSPECIFIED) [Concomitant]
     Active Substance: CALCIUM
     Indication: PRODUCT USED FOR UNKNOWN INDICATION
     Dosage: 500 MG, UNK
     Route: 065
     Dates: start: 2000

REACTIONS (23)
  - Femur fracture [Recovered/Resolved]
  - Femur fracture [Unknown]
  - Osteoporosis [Unknown]
  - Seasonal allergy [Unknown]
  - Balance disorder [Unknown]
  - Foot deformity [Unknown]
  - Packed red blood cell transfusion [Unknown]
  - Depression [Unknown]
  - Rash [Unknown]
  - Device breakage [Unknown]
  - Scapula fracture [Unknown]
  - Muscle spasms [Unknown]
  - Gastritis [Unknown]
  - Gastrooesophageal reflux disease [Unknown]
  - Periodontal operation [Unknown]
  - Fall [Unknown]
  - Infection [Unknown]
  - Hysterectomy [Unknown]
  - Anxiety [Unknown]
  - Hyponatraemia [Unknown]
  - Clavicle fracture [Recovering/Resolving]
  - Anaemia postoperative [Unknown]
  - Pain in extremity [Unknown]

NARRATIVE: CASE EVENT DATE: 2005
